FAERS Safety Report 5611606-6 (Version None)
Quarter: 2008Q1

REPORT INFORMATION
  Report Type: 
  Country: None (occurrence: None)
  Receive Date: 20080201
  Receipt Date: 20080122
  Transmission Date: 20080703
  Serious: Yes (Other)
  Sender: FDA-Public Use
  Company Number: JP-PFIZER INC-2008007789

PATIENT
  Age: 7 Year

DRUGS (5)
  1. SULPERAZON [Suspect]
     Route: 042
  2. PREDONINE [Suspect]
     Route: 048
  3. GASTER [Suspect]
  4. MIRACLID [Suspect]
     Route: 042
  5. CARBENIN [Concomitant]
     Route: 042

REACTIONS (1)
  - PANCREATITIS [None]
